FAERS Safety Report 5794670-3 (Version None)
Quarter: 2008Q2

REPORT INFORMATION
  Report Type: 
  Country: None (occurrence: None)
  Receive Date: 20080627
  Receipt Date: 20080627
  Transmission Date: 20081010
  Serious: No
  Sender: FDA-Public Use
  Company Number: None

PATIENT
  Age: 59 Year
  Sex: Female

DRUGS (1)
  1. PROTONIX [Suspect]
     Indication: GASTROOESOPHAGEAL REFLUX DISEASE
     Dosage: 40 MG ONE QD ORAL  (DURING 1 MO TRIAL)
     Route: 048
     Dates: start: 20080401

REACTIONS (3)
  - DYSPEPSIA [None]
  - HEADACHE [None]
  - NAUSEA [None]
